FAERS Safety Report 4915942-8 (Version None)
Quarter: 2006Q1

REPORT INFORMATION
  Report Type: 
  Country: None (occurrence: None)
  Receive Date: 20060214
  Receipt Date: 20060214
  Transmission Date: 20060701
  Serious: Yes (Other)
  Sender: FDA-Public Use
  Company Number: US200601001518

PATIENT
  Age: 78 Year
  Sex: Female

DRUGS (1)
  1. HUMALOG [Suspect]
     Indication: DIABETES MELLITUS
     Dosage: U, AS NEEDED, SUBCUTANEOUS
     Route: 058

REACTIONS (4)
  - BLOOD GLUCOSE INCREASED [None]
  - BREAST CANCER FEMALE [None]
  - DRUG EFFECT DECREASED [None]
  - PHARMACEUTICAL PRODUCT COMPLAINT [None]
